FAERS Safety Report 9188100 (Version 1)
Quarter: 2013Q1

REPORT INFORMATION
  Report Type: Spontaneous
  Country: IT (occurrence: IT)
  Receive Date: 20130325
  Receipt Date: 20130325
  Transmission Date: 20140127
  Serious: Yes (Hospitalization)
  Sender: FDA-Public Use
  Company Number: IT-GLAXOSMITHKLINE-B0877320A

PATIENT
  Age: 16 Year
  Sex: Female

DRUGS (9)
  1. ARIXTRA [Suspect]
     Indication: PRODUCT USED FOR UNKNOWN INDICATION
     Route: 058
     Dates: start: 20130212, end: 20130301
  2. CARDIOASPIRIN [Suspect]
     Indication: PROPHYLAXIS
     Route: 048
     Dates: start: 20030301, end: 20130301
  3. FRUSEMIDE [Concomitant]
  4. BISOPROLOL [Concomitant]
  5. BENEXOL [Concomitant]
  6. EMAGEL [Concomitant]
  7. TARGOSID [Concomitant]
  8. ATARAX [Concomitant]
  9. TALOFEN [Concomitant]

REACTIONS (2)
  - Rectal ulcer haemorrhage [Recovering/Resolving]
  - Gastrointestinal haemorrhage [Recovering/Resolving]
